FAERS Safety Report 9175103 (Version 1)
Quarter: 2013Q1

REPORT INFORMATION
  Report Type: Spontaneous
  Country: CA (occurrence: CA)
  Receive Date: 20130320
  Receipt Date: 20130320
  Transmission Date: 20140127
  Serious: Yes (Other)
  Sender: FDA-Public Use
  Company Number: CA-JNJFOC-20130304791

PATIENT
  Age: 43 Year
  Sex: Female
  Weight: 72.58 kg

DRUGS (5)
  1. NICORETTE [Suspect]
     Indication: SMOKING CESSATION THERAPY
     Dosage: 1 PUMP.
     Route: 048
     Dates: start: 20130302, end: 20130302
  2. NICODERM CQ [Suspect]
     Indication: SMOKING CESSATION THERAPY
     Dosage: FOR ABOUT A WEEK.
     Route: 061
  3. ZYPREXA [Concomitant]
     Indication: DEPRESSION
     Dosage: SINCE YEARS.
     Route: 065
  4. CITALOPRAM [Concomitant]
     Indication: DEPRESSION
     Dosage: FOR YEARS.
     Route: 065
  5. COGENTIN [Concomitant]
     Indication: DEPRESSION
     Dosage: HALF DAILY, SINCE YEARS.
     Route: 065

REACTIONS (9)
  - Convulsion [Recovering/Resolving]
  - Vomiting [Recovering/Resolving]
  - Diarrhoea [Recovering/Resolving]
  - Euphoric mood [Recovering/Resolving]
  - Glassy eyes [Recovering/Resolving]
  - Dizziness [Recovering/Resolving]
  - Malaise [Recovering/Resolving]
  - Asthenia [Not Recovered/Not Resolved]
  - Abnormal behaviour [Recovering/Resolving]
